FAERS Safety Report 11431868 (Version 1)
Quarter: 2015Q3

REPORT INFORMATION
  Report Type: Spontaneous
  Country: US (occurrence: US)
  Receive Date: 20150828
  Receipt Date: 20150828
  Transmission Date: 20151125
  Serious: No
  Sender: FDA-Public Use
  Company Number: CHPA2015US010117

PATIENT
  Age: 2 Month
  Sex: Female

DRUGS (1)
  1. VOLTAREN [Suspect]
     Active Substance: DICLOFENAC SODIUM
     Indication: MATERNAL EXPOSURE BEFORE PREGNANCY

REACTIONS (2)
  - Foetal growth restriction [Recovered/Resolved]
  - Maternal exposure before pregnancy [Unknown]
